FAERS Safety Report 12094439 (Version 1)
Quarter: 2016Q1

REPORT INFORMATION
  Report Type: Report from Study
  Country: JP (occurrence: JP)
  Receive Date: 20160219
  Receipt Date: 20160219
  Transmission Date: 20160526
  Serious: Yes (Hospitalization)
  Sender: FDA-Public Use
  Company Number: JP-BIOGEN-A201500360

PATIENT
  Age: 68 Year
  Sex: Male
  Weight: 68 kg

DRUGS (10)
  1. LYRICA [Concomitant]
     Active Substance: PREGABALIN
     Indication: SECONDARY PROGRESSIVE MULTIPLE SCLEROSIS
     Route: 048
  2. BESACOLIN [Concomitant]
     Active Substance: BETHANECHOL CHLORIDE
     Route: 048
  3. URIEF [Concomitant]
     Active Substance: SILODOSIN
     Route: 048
  4. TYSABRI [Suspect]
     Active Substance: NATALIZUMAB
     Indication: SECONDARY PROGRESSIVE MULTIPLE SCLEROSIS
     Route: 041
     Dates: start: 20141021
  5. LIORESAL [Concomitant]
     Active Substance: BACLOFEN
     Indication: SECONDARY PROGRESSIVE MULTIPLE SCLEROSIS
     Route: 048
  6. AVOLVE [Concomitant]
     Active Substance: DUTASTERIDE
     Route: 048
  7. MAGMITT [Concomitant]
     Active Substance: MAGNESIUM OXIDE
     Indication: CONSTIPATION
     Route: 048
  8. UBRETID [Concomitant]
     Active Substance: DISTIGMINE BROMIDE
     Route: 048
  9. TOUGHMAC E [Concomitant]
     Active Substance: AMYLASE\LIPASE\PROTEASE
     Indication: CHRONIC GASTRITIS
     Route: 048
  10. RIVOTRIL [Concomitant]
     Active Substance: CLONAZEPAM
     Indication: SECONDARY PROGRESSIVE MULTIPLE SCLEROSIS
     Route: 048

REACTIONS (1)
  - Cellulitis [Recovered/Resolved]

NARRATIVE: CASE EVENT DATE: 20150930
